FAERS Safety Report 6443835-6 (Version None)
Quarter: 2009Q4

REPORT INFORMATION
  Report Type: 
  Country: None (occurrence: None)
  Receive Date: 20091113
  Receipt Date: 20091030
  Transmission Date: 20100525
  Serious: Yes (Hospitalization)
  Sender: FDA-Public Use
  Company Number: DSJ-2009-07864

PATIENT
  Age: 66 Year
  Sex: Male

DRUGS (7)
  1. OLMESARTAN MEDOXOMIL [Suspect]
     Indication: HYPERTENSION
     Dosage: 20 MG (20 MG,1 IN 1 D)
     Dates: end: 20090609
  2. LOXONIN (LOXOPROFEN SODIUM) [Suspect]
     Dosage: 180 MG
  3. AMLODIPINE [Concomitant]
  4. OMEPRAZOLE [Suspect]
  5. MYONAL (EPERISONE HYDROCHLORIDE) [Suspect]
  6. ADETPHOS (ADENOSINE TRIPHOSPHATE, DISODIUM SALT) [Concomitant]
  7. CALMADOL (ALFACALCIDOL) [Concomitant]

REACTIONS (1)
  - FLUSHING [None]
